FAERS Safety Report 20835215 (Version 1)
Quarter: 2022Q2

REPORT INFORMATION
  Report Type: Spontaneous
  Country: US (occurrence: US)
  Receive Date: 20220516
  Receipt Date: 20220516
  Transmission Date: 20220721
  Serious: No
  Sender: FDA-Public Use
  Company Number: US-PFIZER INC-202101548871

PATIENT
  Age: 72 Year
  Sex: Female
  Weight: 52.16 kg

DRUGS (1)
  1. METHYLPREDNISOLONE [Suspect]
     Active Substance: METHYLPREDNISOLONE
     Dosage: 2 MG

REACTIONS (2)
  - Drug ineffective [Unknown]
  - Illness [Unknown]
